FAERS Safety Report 14784584 (Version 1)
Quarter: 2018Q2

REPORT INFORMATION
  Report Type: Spontaneous
  Country: US (occurrence: US)
  Receive Date: 20180420
  Receipt Date: 20180420
  Transmission Date: 20180711
  Serious: Yes (Hospitalization, Other)
  Sender: FDA-Public Use
  Company Number: US-PFIZER INC-2018161139

PATIENT
  Age: 60 Year
  Sex: Male
  Weight: 77 kg

DRUGS (1)
  1. RAPAMUNE [Suspect]
     Active Substance: SIROLIMUS
     Indication: PROPHYLAXIS AGAINST TRANSPLANT REJECTION
     Dosage: 0.5 MG, DAILY
     Route: 048
     Dates: start: 2015

REACTIONS (7)
  - Coma [Unknown]
  - Product use in unapproved indication [Unknown]
  - Cardiac failure congestive [Not Recovered/Not Resolved]
  - Paralysis [Unknown]
  - Dyspnoea [Unknown]
  - Gait inability [Recovered/Resolved]
  - Speech disorder [Unknown]

NARRATIVE: CASE EVENT DATE: 2015
